FAERS Safety Report 20265635 (Version 1)
Quarter: 2021Q4

REPORT INFORMATION
  Report Type: Spontaneous
  Country: US (occurrence: None)
  Receive Date: 20211230
  Receipt Date: 20211230
  Transmission Date: 20220303
  Serious: Yes (Death)
  Sender: FDA-Public Use
  Company Number: None

PATIENT
  Sex: Male
  Weight: 113 kg

DRUGS (1)
  1. BAMLANIVIMAB\ETESEVIMAB [Suspect]
     Active Substance: BAMLANIVIMAB\ETESEVIMAB

REACTIONS (15)
  - Pneumonia [None]
  - Chronic obstructive pulmonary disease [None]
  - Emphysema [None]
  - Atrial fibrillation [None]
  - Hypertension [None]
  - Dementia [None]
  - Obesity [None]
  - Coronary artery disease [None]
  - Peripheral vascular disorder [None]
  - Restless legs syndrome [None]
  - Anaemia [None]
  - Somnolence [None]
  - Respiratory failure [None]
  - Cardiac failure congestive [None]
  - Type 2 diabetes mellitus [None]

NARRATIVE: CASE EVENT DATE: 20211214
